FAERS Safety Report 20541776 (Version 1)
Quarter: 2022Q1

REPORT INFORMATION
  Report Type: Spontaneous
  Country: JP (occurrence: JP)
  Receive Date: 20220302
  Receipt Date: 20220302
  Transmission Date: 20220424
  Serious: Yes (Hospitalization)
  Sender: FDA-Public Use
  Company Number: JP-JNJFOC-20211121761

PATIENT
  Age: 15 Year
  Sex: Male

DRUGS (5)
  1. METHYLPHENIDATE HYDROCHLORIDE [Suspect]
     Active Substance: METHYLPHENIDATE HYDROCHLORIDE
     Indication: Attention deficit hyperactivity disorder
     Route: 048
  2. METHYLPHENIDATE HYDROCHLORIDE [Suspect]
     Active Substance: METHYLPHENIDATE HYDROCHLORIDE
     Dosage: 18 MG IN THE MORNING, 144 MG IN THE EVENING
     Route: 048
     Dates: start: 20211101, end: 20211101
  3. STRATTERA [Concomitant]
     Active Substance: ATOMOXETINE HYDROCHLORIDE
     Dosage: DOSE UNKNOWN
     Route: 048
  4. STRATTERA [Concomitant]
     Active Substance: ATOMOXETINE HYDROCHLORIDE
     Dosage: IN THE EVENING
     Route: 048
     Dates: start: 20211101, end: 20211101
  5. MELATOBEL [Concomitant]
     Route: 048

REACTIONS (6)
  - Pyrexia [Recovering/Resolving]
  - Tachycardia [Recovering/Resolving]
  - Insomnia [Recovering/Resolving]
  - Tremor [Recovering/Resolving]
  - Overdose [Unknown]
  - Impulsive behaviour [Unknown]

NARRATIVE: CASE EVENT DATE: 20211101
